FAERS Safety Report 15111168 (Version 2)
Quarter: 2018Q3

REPORT INFORMATION
  Report Type: Report from Study
  Country: IT (occurrence: IT)
  Receive Date: 20180705
  Receipt Date: 20180718
  Transmission Date: 20181010
  Serious: Yes (Hospitalization)
  Sender: FDA-Public Use
  Company Number: IT-TEVA-2018-IT-918985

PATIENT
  Age: 75 Year
  Sex: Male

DRUGS (8)
  1. POTASSIUM CANRENOATE [Concomitant]
     Active Substance: CANRENOATE POTASSIUM
  2. RASILEZ 300 MG FILM?COATED TABLETS [Concomitant]
  3. MODURETIC 5?50 [Concomitant]
     Active Substance: AMILORIDE HYDROCHLORIDE\HYDROCHLOROTHIAZIDE
  4. COUMADIN [Concomitant]
     Active Substance: WARFARIN SODIUM
     Route: 048
  5. SIVASTIN 20 MG COMPRESSE RIVESTITE CON FILM [Concomitant]
  6. ALLOPURINOL. [Suspect]
     Active Substance: ALLOPURINOL
     Route: 048
  7. METOPROLOL. [Concomitant]
     Active Substance: METOPROLOL
     Route: 048
  8. TRIATEC  5 MG COMPRESSE [Concomitant]

REACTIONS (1)
  - Drug reaction with eosinophilia and systemic symptoms [Recovering/Resolving]

NARRATIVE: CASE EVENT DATE: 20180310
